FAERS Safety Report 15304168 (Version 1)
Quarter: 2018Q3

REPORT INFORMATION
  Report Type: Spontaneous
  Country: US (occurrence: US)
  Receive Date: 20180809
  Receipt Date: 20180809
  Transmission Date: 20181010
  Serious: No
  Sender: FDA-Public Use
  Company Number: None

PATIENT
  Age: 62 Year
  Sex: Male

DRUGS (1)
  1. VOSEVI [Suspect]
     Active Substance: SOFOSBUVIR\VELPATASVIR\VOXILAPREVIR
     Dates: start: 20180703, end: 20180709

REACTIONS (5)
  - Dyspnoea [None]
  - Vision blurred [None]
  - Incontinence [None]
  - Drug dose omission [None]
  - Nausea [None]

NARRATIVE: CASE EVENT DATE: 20180809
